FAERS Safety Report 4885927-9 (Version None)
Quarter: 2006Q1

REPORT INFORMATION
  Report Type: 
  Country: None (occurrence: None)
  Receive Date: 20060118
  Receipt Date: 20060103
  Transmission Date: 20060701
  Serious: Yes (Hospitalization)
  Sender: FDA-Public Use
  Company Number: US200601000449

PATIENT
  Age: 44 Year
  Sex: Female

DRUGS (7)
  1. HUMALOG [Suspect]
     Indication: DIABETES MELLITUS
     Dates: end: 20050101
  2. HUMALOG [Suspect]
     Indication: DIABETES MELLITUS
     Dates: start: 20050101
  3. CYMBALTA [Suspect]
     Dosage: 60 MG, 2/D
     Dates: start: 20050101
  4. ACTOS [Concomitant]
  5. LIPITOR [Concomitant]
  6. SYNTHROID [Concomitant]
  7. TOPIRAMATE [Concomitant]

REACTIONS (7)
  - BLOOD GLUCOSE INCREASED [None]
  - CARPAL TUNNEL SYNDROME [None]
  - DRUG INEFFECTIVE [None]
  - HEPATITIS A [None]
  - MALAISE [None]
  - MIGRAINE [None]
  - NERVE INJURY [None]
